FAERS Safety Report 7274877-9 (Version None)
Quarter: 2011Q1

REPORT INFORMATION
  Report Type: 
  Country: None (occurrence: None)
  Receive Date: 20110204
  Receipt Date: 20110120
  Transmission Date: 20110831
  Serious: Yes (Hospitalization)
  Sender: FDA-Public Use
  Company Number: FR-CELGENEUS-056-C5013-11012100

PATIENT
  Sex: Male
  Weight: 89 kg

DRUGS (19)
  1. ZELITREX [Concomitant]
     Indication: PROPHYLAXIS
     Route: 048
     Dates: start: 20100421
  2. PARIET [Concomitant]
     Route: 048
     Dates: start: 20070101
  3. BACTRIM DS [Concomitant]
     Indication: INFECTION PROPHYLAXIS
     Route: 048
     Dates: start: 20100421
  4. CLAMOXYL [Concomitant]
     Indication: INFECTION PROPHYLAXIS
     Route: 048
     Dates: start: 20100421
  5. CRESTOR [Concomitant]
     Route: 048
     Dates: start: 20030101
  6. ZOPHREN [Concomitant]
     Route: 048
     Dates: start: 20100421
  7. HEXAQUINE [Concomitant]
     Indication: PROPHYLAXIS
     Route: 048
     Dates: start: 20100408
  8. ATACAND [Concomitant]
     Route: 048
     Dates: start: 20030101
  9. EMEND [Concomitant]
     Route: 048
     Dates: start: 20100421
  10. CC-5013 [Suspect]
     Route: 048
     Dates: start: 20101224
  11. DEXAMETHASONE [Suspect]
     Route: 065
     Dates: start: 20101224
  12. FLECAINE [Concomitant]
     Route: 048
     Dates: start: 20080101
  13. PERMIXON [Concomitant]
     Indication: PROSTATIC ADENOMA
     Route: 048
     Dates: start: 20040101
  14. ELUDUL [Concomitant]
     Route: 002
     Dates: start: 20101201
  15. CC-5013 [Suspect]
     Indication: MULTIPLE MYELOMA
     Route: 048
     Dates: start: 20100421
  16. DEXAMETHASONE [Suspect]
     Indication: MULTIPLE MYELOMA
     Route: 065
     Dates: start: 20100421
  17. AVODART [Concomitant]
     Indication: PROSTATIC ADENOMA
     Route: 048
     Dates: start: 20040101
  18. KARDEGIC [Concomitant]
     Indication: THROMBOSIS PROPHYLAXIS
     Route: 048
     Dates: start: 20100421
  19. DURAGESIC-100 [Concomitant]
     Route: 062
     Dates: start: 20101103

REACTIONS (1)
  - LUNG DISORDER [None]
